FAERS Safety Report 11005774 (Version 3)
Quarter: 2015Q2

REPORT INFORMATION
  Report Type: Report from Study
  Country: JP (occurrence: JP)
  Receive Date: 20150409
  Receipt Date: 20150618
  Transmission Date: 20150821
  Serious: Yes (Hospitalization)
  Sender: FDA-Public Use
  Company Number: JP-EISAI MEDICAL RESEARCH-EC-2015-005785

PATIENT
  Age: 90 Year
  Sex: Female

DRUGS (11)
  1. ARICEPT [Suspect]
     Active Substance: DONEPEZIL HYDROCHLORIDE
     Route: 048
     Dates: start: 20131204, end: 20140118
  2. URITOS [Concomitant]
     Active Substance: IMIDAFENACIN
  3. EPADEL S [Concomitant]
     Active Substance: ETHYL ICOSAPENTATE\ICOSAPENT
  4. SHAKUYAKUKANZOTO [Concomitant]
     Active Substance: HERBALS
  5. ALDACTONE [Concomitant]
     Active Substance: SPIRONOLACTONE
  6. MYSLEE [Concomitant]
     Active Substance: ZOLPIDEM TARTRATE
  7. ARICEPT [Suspect]
     Active Substance: DONEPEZIL HYDROCHLORIDE
     Indication: DEMENTIA ALZHEIMER^S TYPE
     Route: 048
     Dates: start: 20131120, end: 20131203
  8. LANSOPRAZOLE OD [Concomitant]
     Active Substance: LANSOPRAZOLE
  9. EPINASTINE HYDROCHLORIDE. [Concomitant]
     Active Substance: EPINASTINE HYDROCHLORIDE
  10. SEDEKOPAN [Concomitant]
  11. MERISLON [Concomitant]
     Active Substance: BETAHISTINE MESILATE

REACTIONS (1)
  - Fall [Unknown]

NARRATIVE: CASE EVENT DATE: 20140118
